FAERS Safety Report 4399406-9 (Version None)
Quarter: 2004Q3

REPORT INFORMATION
  Report Type: 
  Country: None (occurrence: None)
  Receive Date: 20040712
  Receipt Date: 20040628
  Transmission Date: 20050211
  Serious: Yes (Death)
  Sender: FDA-Public Use
  Company Number: 04-06-0930

PATIENT
  Sex: Male

DRUGS (1)
  1. CLOZAPINE - IVAX PHARMACEUTICALS, INC. TABLETS [Suspect]
     Dosage: ORAL
     Route: 048

REACTIONS (1)
  - CARDIAC ARREST [None]
